FAERS Safety Report 7460216-7 (Version None)
Quarter: 2011Q2

REPORT INFORMATION
  Report Type: 
  Country: None (occurrence: None)
  Receive Date: 20110505
  Receipt Date: 20110428
  Transmission Date: 20111010
  Serious: Yes (Other)
  Sender: FDA-Public Use
  Company Number: US-CEPHALON-2011002115

PATIENT
  Sex: Male

DRUGS (3)
  1. FENTORA [Suspect]
     Indication: MIGRAINE
  2. FENTORA [Suspect]
     Indication: CANCER PAIN
     Route: 002
  3. MORPHINE [Concomitant]

REACTIONS (1)
  - DRUG PRESCRIBING ERROR [None]
